FAERS Safety Report 21372869 (Version 1)
Quarter: 2022Q3

REPORT INFORMATION
  Report Type: Report from Study
  Country: BE (occurrence: BE)
  Receive Date: 20220924
  Receipt Date: 20220924
  Transmission Date: 20221027
  Serious: Yes (Hospitalization, Other)
  Sender: FDA-Public Use
  Company Number: BE-ABBVIE-4129330

PATIENT
  Age: 79 Year
  Sex: Male
  Weight: 79 kg

DRUGS (7)
  1. CARBIDOPA\LEVODOPA [Suspect]
     Active Substance: CARBIDOPA\LEVODOPA
     Indication: Parkinson^s disease
     Route: 050
     Dates: start: 20180730
  2. CARBIDOPA\LEVODOPA [Suspect]
     Active Substance: CARBIDOPA\LEVODOPA
     Dosage: MD 8.8 ML; CD 3.4 ML/HR DURING 16 HOURS; ED 2.2 ML, CND: 2.1 ML/HR
     Route: 050
     Dates: start: 20220609
  3. Corbilta ( Stalevo) [Concomitant]
     Indication: Product used for unknown indication
     Dosage: FORM STRENGTH: 100 UNKNOWN?AT 12.30 AND 20.30 HRS
  4. Corbilta ( Stalevo) [Concomitant]
     Indication: Product used for unknown indication
     Dosage: FORM STRENGTH: 150 UNKNOWN?AT 08:00 AND 16.30 HRS
  5. FLUDROCORTISONE [Concomitant]
     Active Substance: FLUDROCORTISONE
     Indication: Product used for unknown indication
     Dosage: AT 08:00 HRS
  6. AZILECT [Concomitant]
     Active Substance: RASAGILINE MESYLATE
     Indication: Product used for unknown indication
     Dosage: AT 08:00 HRS
  7. Prolopa dispersible [Concomitant]
     Indication: Product used for unknown indication
     Dosage: AT 07:00, 11:00, 14.30, 18.30 HRS?125 MILLIGRAM

REACTIONS (1)
  - Seizure [Unknown]
